FAERS Safety Report 17740491 (Version 2)
Quarter: 2020Q2

REPORT INFORMATION
  Report Type: Spontaneous
  Country: US (occurrence: US)
  Receive Date: 20200504
  Receipt Date: 20200601
  Transmission Date: 20200714
  Serious: No
  Sender: FDA-Public Use
  Company Number: US-SA-2020SA113958

PATIENT
  Age: 49 Year
  Sex: Female

DRUGS (3)
  1. XOLAIR [Concomitant]
     Active Substance: OMALIZUMAB
  2. DUPIXENT [Suspect]
     Active Substance: DUPILUMAB
     Dosage: 300 MG, QOW
     Route: 058
  3. DUPIXENT [Suspect]
     Active Substance: DUPILUMAB
     Indication: ASTHMA
     Dosage: 600 MG, 1X
     Dates: start: 20200429, end: 20200429

REACTIONS (5)
  - Drug hypersensitivity [Unknown]
  - Product use issue [Unknown]
  - Muscular weakness [Unknown]
  - Dysgeusia [Unknown]
  - Feeling abnormal [Unknown]

NARRATIVE: CASE EVENT DATE: 20200429
